FAERS Safety Report 21023544 (Version 1)
Quarter: 2022Q2

REPORT INFORMATION
  Report Type: Spontaneous
  Country: DE (occurrence: DE)
  Receive Date: 20220629
  Receipt Date: 20220629
  Transmission Date: 20220720
  Serious: Yes (Other)
  Sender: FDA-Public Use
  Company Number: DE-AMGEN-DEUSP2022106307

PATIENT
  Age: 75 Year
  Sex: Male

DRUGS (7)
  1. REPATHA [Suspect]
     Active Substance: EVOLOCUMAB
     Indication: Coronary artery disease
     Dosage: 140 MILLIGRAM
     Route: 058
     Dates: start: 201712
  2. REPATHA [Suspect]
     Active Substance: EVOLOCUMAB
     Indication: Hypercholesterolaemia
  3. PRALUENT [Concomitant]
     Active Substance: ALIROCUMAB
     Dosage: 75 MILLIGRAM
     Route: 058
     Dates: start: 20180621
  4. EZETIMIBE [Concomitant]
     Active Substance: EZETIMIBE
     Dosage: 10 MILLIGRAM
     Dates: start: 20160801
  5. ISOSORBIDE DINITRATE [Concomitant]
     Active Substance: ISOSORBIDE DINITRATE
     Dosage: UNK
     Dates: start: 20210428
  6. XARELTO [Concomitant]
     Active Substance: RIVAROXABAN
  7. INCLISIRAN [Concomitant]
     Active Substance: INCLISIRAN

REACTIONS (6)
  - Atrial fibrillation [Unknown]
  - Coronary artery stenosis [Unknown]
  - Accident [Unknown]
  - Rib fracture [Unknown]
  - Drug intolerance [Unknown]
  - Myalgia [Unknown]

NARRATIVE: CASE EVENT DATE: 20180101
